FAERS Safety Report 17466452 (Version 1)
Quarter: 2020Q1

REPORT INFORMATION
  Report Type: Spontaneous
  Country: US (occurrence: US)
  Receive Date: 20200227
  Receipt Date: 20200227
  Transmission Date: 20200409
  Serious: Yes (Hospitalization, Other)
  Sender: FDA-Public Use
  Company Number: US-AUROBINDO-AUR-APL-2020-008984

PATIENT
  Age: 31 Year
  Sex: Female

DRUGS (2)
  1. ADENOSINE INJECTION [Suspect]
     Active Substance: ADENOSINE
     Indication: SINUS RHYTHM
     Dosage: 6 MILLIGRAM BOLUS DOSE
     Route: 065
  2. SODIUM CHLORIDE. [Suspect]
     Active Substance: SODIUM CHLORIDE
     Indication: SINUS RHYTHM
     Dosage: UNK
     Route: 065

REACTIONS (3)
  - Cardiac arrest [Unknown]
  - Abdominal pain [Unknown]
  - Exposure during pregnancy [Unknown]
